FAERS Safety Report 5292916-1 (Version None)
Quarter: 2007Q2

REPORT INFORMATION
  Report Type: 
  Country: None (occurrence: None)
  Receive Date: 20070411
  Receipt Date: 20070329
  Transmission Date: 20071010
  Serious: Yes (Death)
  Sender: FDA-Public Use
  Company Number: JP-PFIZER INC-2007025926

PATIENT
  Age: 80 Year
  Sex: Male

DRUGS (9)
  1. VFEND [Suspect]
     Indication: BRONCHOPULMONARY ASPERGILLOSIS
     Route: 042
     Dates: start: 20060423, end: 20060426
  2. ITRACONAZOLE [Concomitant]
     Route: 048
     Dates: start: 20060105, end: 20060419
  3. MICAFUNGIN [Concomitant]
     Route: 042
     Dates: start: 20060420
  4. ANTITHROMBOTIC AGENTS [Concomitant]
     Route: 042
     Dates: start: 20060423, end: 20060423
  5. GLOVENIN I [Concomitant]
     Route: 042
     Dates: start: 20060423, end: 20060424
  6. FRAGMIN [Concomitant]
     Route: 042
     Dates: start: 20060424
  7. MAXIPIME [Concomitant]
     Route: 042
     Dates: start: 20060420, end: 20060423
  8. MEROPEN [Concomitant]
     Route: 042
     Dates: start: 20060423
  9. ROPION [Concomitant]
     Route: 042
     Dates: start: 20060424, end: 20060424

REACTIONS (1)
  - DEATH [None]
